FAERS Safety Report 24791161 (Version 1)
Quarter: 2024Q4

REPORT INFORMATION
  Report Type: Spontaneous
  Country: US (occurrence: US)
  Receive Date: 20241230
  Receipt Date: 20241230
  Transmission Date: 20250114
  Serious: No
  Sender: CIPLA
  Company Number: US-CIPLA LTD.-2024US05934

PATIENT

DRUGS (1)
  1. BUDESONIDE [Suspect]
     Active Substance: BUDESONIDE
     Indication: Product used for unknown indication
     Dosage: USE 1 VIAL VIA NEBULIZER TWICE A DAY
     Dates: start: 20240528

REACTIONS (3)
  - Dyspnoea [Recovered/Resolved]
  - Chest discomfort [Recovered/Resolved]
  - Liquid product physical issue [Unknown]

NARRATIVE: CASE EVENT DATE: 20240501
